FAERS Safety Report 4402191-5 (Version None)
Quarter: 2004Q3

REPORT INFORMATION
  Report Type: 
  Country: None (occurrence: None)
  Receive Date: 20040720
  Receipt Date: 20040621
  Transmission Date: 20050211
  Serious: Yes (Life-Threatening, Hospitalization)
  Sender: FDA-Public Use
  Company Number: JP-MERCK-0406USA01986

PATIENT
  Age: 85 Year
  Sex: Female
  Weight: 41 kg

DRUGS (4)
  1. FOSAMAX [Suspect]
     Indication: OSTEOPOROSIS
     Route: 048
     Dates: start: 20040423, end: 20040610
  2. MARZULENE-S [Concomitant]
     Route: 048
     Dates: start: 20040404, end: 20040610
  3. ETODOLAC [Concomitant]
     Route: 065
  4. LOXONIN [Concomitant]
     Indication: PAIN
     Route: 048
     Dates: start: 20040404, end: 20040610

REACTIONS (4)
  - FEELING ABNORMAL [None]
  - PYREXIA [None]
  - RESPIRATORY DISORDER [None]
  - WHITE BLOOD CELL COUNT DECREASED [None]
